FAERS Safety Report 4290370-X (Version None)
Quarter: 2004Q1

REPORT INFORMATION
  Report Type: 
  Country: None (occurrence: None)
  Receive Date: 20040209
  Receipt Date: 20040122
  Transmission Date: 20041129
  Serious: Yes (Death, Hospitalization)
  Sender: FDA-Public Use
  Company Number: 7331

PATIENT
  Age: 83 Year
  Sex: Female

DRUGS (1)
  1. METHOTREXATE [Suspect]
     Indication: RHEUMATOID ARTHRITIS
     Dosage: 6 MG WEEKLY PO
     Route: 048
     Dates: start: 20020510, end: 20020705

REACTIONS (7)
  - BONE MARROW DEPRESSION [None]
  - DIFFUSE LARGE B-CELL LYMPHOMA [None]
  - DISSEMINATED INTRAVASCULAR COAGULATION [None]
  - DRUG INEFFECTIVE [None]
  - METASTASES TO BONE [None]
  - PULMONARY ALVEOLAR HAEMORRHAGE [None]
  - THROMBOCYTOPENIA [None]
